FAERS Safety Report 5015391-0 (Version None)
Quarter: 2006Q2

REPORT INFORMATION
  Report Type: 
  Country: None (occurrence: None)
  Receive Date: 20060601
  Receipt Date: 20060522
  Transmission Date: 20061013
  Serious: Yes (Death, Hospitalization)
  Sender: FDA-Public Use
  Company Number: US-JNJFOC-20060404383

PATIENT
  Sex: Female
  Weight: 55.34 kg

DRUGS (4)
  1. ELMIRON [Suspect]
     Indication: DRUG USE FOR UNKNOWN INDICATION
     Route: 048
  2. ULTRAM [Suspect]
     Indication: PAIN
     Dosage: 50 MG TABLETS 6 TO 7 TIMES DAILY
  3. DITROPAN [Concomitant]
  4. LEVAQUIN [Concomitant]

REACTIONS (8)
  - ARRHYTHMIA [None]
  - DRUG TOXICITY [None]
  - HYPOTENSION [None]
  - MULTI-ORGAN FAILURE [None]
  - MYOCARDIAL INFARCTION [None]
  - PNEUMONIA [None]
  - PNEUMOTHORAX [None]
  - SEPSIS [None]
